FAERS Safety Report 8454810-4 (Version None)
Quarter: 2012Q2

REPORT INFORMATION
  Report Type: 
  Country: None (occurrence: None)
  Receive Date: 20120614
  Receipt Date: 20120601
  Transmission Date: 20120825
  Serious: Yes (Other)
  Sender: FDA-Public Use
  Company Number: 2012MA006855

PATIENT

DRUGS (2)
  1. MICONAZOLE NITRATE [Suspect]
     Indication: VULVOVAGINAL CANDIDIASIS
     Dosage: VAG
  2. WARFARIN SODIUM [Suspect]
     Indication: HEART VALVE REPLACEMENT
     Dosage: PO
     Route: 048

REACTIONS (6)
  - INTERNATIONAL NORMALISED RATIO INCREASED [None]
  - RECTAL HAEMORRHAGE [None]
  - HAEMATURIA [None]
  - HAEMORRHAGE [None]
  - HAEMATOMA [None]
  - ANAEMIA [None]
